FAERS Safety Report 8177595-8 (Version None)
Quarter: 2012Q1

REPORT INFORMATION
  Report Type: 
  Country: None (occurrence: None)
  Receive Date: 20120301
  Receipt Date: 20120222
  Transmission Date: 20120608
  Serious: Yes (Other)
  Sender: FDA-Public Use
  Company Number: PHEH2004US03404

PATIENT
  Sex: Male
  Weight: 74.83 kg

DRUGS (37)
  1. AREDIA [Suspect]
     Indication: HYPOGONADISM
     Dosage: 30 MG,
     Dates: start: 20020812, end: 20021201
  2. LUPRON [Concomitant]
     Dosage: 7.5 MG, UNK
     Dates: start: 20020101
  3. TRAZODONE HCL [Concomitant]
     Dosage: 100 MG, QD
     Route: 048
     Dates: start: 20040130
  4. VANCOMYCIN [Concomitant]
     Dates: start: 20020101
  5. PROSCAR [Concomitant]
     Dosage: 5 MG, QD
     Route: 048
  6. AMBIEN [Concomitant]
     Dates: start: 19950617
  7. SIMVASTATIN [Concomitant]
     Dosage: 10 MG, UNK
     Dates: start: 20040101
  8. FOSAMAX [Suspect]
     Indication: OSTEOPENIA
     Dosage: 70 MG ONE TIME PER WEEK
     Dates: start: 20011115, end: 20021201
  9. HYDROCORTISONE [Concomitant]
     Indication: PROPHYLAXIS
     Dosage: 20 MG, BID
     Route: 048
     Dates: start: 20030729
  10. CELEBREX [Concomitant]
     Dosage: 200 MG, BID
     Route: 048
     Dates: start: 20010101
  11. TAMOXIFEN CITRATE [Concomitant]
     Indication: GYNAECOMASTIA
     Dosage: 10 MG, BID
  12. AVODART [Concomitant]
     Dosage: 0.5 MG, QD
     Route: 048
     Dates: start: 20030224
  13. VANCOMYCIN [Concomitant]
     Route: 042
     Dates: start: 20041217
  14. CASODEX [Concomitant]
     Dates: start: 20020101
  15. GLUCOSAMINE [Concomitant]
     Dosage: 750 MG, DAY
     Dates: start: 19980101
  16. ACIPHEX [Concomitant]
  17. TRAZODONE HCL [Concomitant]
     Dosage: 50 MG, DAY
     Dates: start: 20020714
  18. PRIMAXIN [Concomitant]
     Dates: start: 20020101
  19. TOBRADEX [Concomitant]
  20. FLOMAX [Concomitant]
     Dosage: 0.4 MG, PRN
  21. METROGEL [Concomitant]
  22. CALCITRIOL [Concomitant]
     Dosage: 0.5 UG, UNK
     Dates: start: 20040101
  23. VALERIAN [Concomitant]
     Dosage: 800 MG, UNK
  24. KEFLEX [Concomitant]
  25. METAMUCIL-2 [Concomitant]
  26. MELATONIN [Concomitant]
     Dosage: 4.5 MG, UNK
     Dates: start: 20000101
  27. LORAZEPAM [Concomitant]
  28. ZOMETA [Suspect]
     Dosage: 4 MG, QMO
     Route: 042
     Dates: start: 20021115
  29. EVISTA [Concomitant]
     Dosage: 60 MG, QD
  30. LUPRON [Concomitant]
     Dosage: 22.5 MG, QUARTERLY
     Route: 030
     Dates: start: 20020507
  31. HALCION [Concomitant]
  32. VITAMINS NOS [Concomitant]
  33. PREVACID [Concomitant]
     Dosage: 30 MG, UNK
     Route: 048
  34. LEUKINE [Concomitant]
  35. HEPARIN [Concomitant]
  36. NIZORAL [Concomitant]
  37. ANUSOL                             /01604901/ [Concomitant]
     Route: 054
     Dates: start: 20021024

REACTIONS (89)
  - OSTEOMYELITIS [None]
  - WOUND DEHISCENCE [None]
  - BONE SWELLING [None]
  - TOOTHACHE [None]
  - JAW CYST [None]
  - ANAEMIA OF CHRONIC DISEASE [None]
  - PERINEAL PAIN [None]
  - AMNESIA [None]
  - BLOOD TESTOSTERONE DECREASED [None]
  - DIVERTICULUM [None]
  - ABDOMINAL PAIN UPPER [None]
  - EOSINOPHILIA [None]
  - VERTEBRAL FORAMINAL STENOSIS [None]
  - OSTEOPOROSIS [None]
  - INJURY [None]
  - DYSPHAGIA [None]
  - LYMPHADENOPATHY [None]
  - PYREXIA [None]
  - LUNG INFILTRATION [None]
  - INTERVERTEBRAL DISC DEGENERATION [None]
  - VITAMIN B12 DEFICIENCY [None]
  - DEAFNESS [None]
  - BASAL CELL CARCINOMA [None]
  - PELVIC PAIN [None]
  - DIZZINESS [None]
  - OSTEONECROSIS OF JAW [None]
  - FACE OEDEMA [None]
  - GINGIVAL SWELLING [None]
  - GASTROOESOPHAGEAL REFLUX DISEASE [None]
  - NEOPLASM PROGRESSION [None]
  - URINARY INCONTINENCE [None]
  - ADRENAL INSUFFICIENCY [None]
  - EPIDIDYMITIS [None]
  - POOR QUALITY SLEEP [None]
  - NEURALGIA [None]
  - DENTAL FISTULA [None]
  - SUBMANDIBULAR MASS [None]
  - ANHEDONIA [None]
  - OSTEOPENIA [None]
  - IMPETIGO [None]
  - BLADDER DIVERTICULUM [None]
  - GENITAL RASH [None]
  - BALANITIS [None]
  - OESOPHAGEAL STENOSIS [None]
  - KYPHOSIS [None]
  - PEPTIC ULCER [None]
  - HOT FLUSH [None]
  - FATIGUE [None]
  - HEADACHE [None]
  - INSOMNIA [None]
  - RASH [None]
  - SINUSITIS [None]
  - ABSCESS JAW [None]
  - PAIN IN JAW [None]
  - FISTULA DISCHARGE [None]
  - IMPAIRED HEALING [None]
  - ANXIETY [None]
  - RHINITIS [None]
  - PNEUMONIA VIRAL [None]
  - LUMBAR SPINAL STENOSIS [None]
  - SEBORRHOEIC KERATOSIS [None]
  - HYPERTENSION [None]
  - HYPERCHOLESTEROLAEMIA [None]
  - PROSTATE TENDERNESS [None]
  - LIBIDO DECREASED [None]
  - SKIN LESION [None]
  - BENIGN OESOPHAGEAL NEOPLASM [None]
  - DYSPEPSIA [None]
  - BONE LESION [None]
  - TESTICULAR PAIN [None]
  - ERECTILE DYSFUNCTION [None]
  - MALAISE [None]
  - CONSTIPATION [None]
  - PAIN [None]
  - GINGIVAL OEDEMA [None]
  - DISABILITY [None]
  - COUGH [None]
  - HIATUS HERNIA [None]
  - NEOPLASM MALIGNANT [None]
  - METASTASES TO SPINE [None]
  - SPINAL HAEMANGIOMA [None]
  - GINGIVAL ERYTHEMA [None]
  - CELLULITIS [None]
  - TOOTH INFECTION [None]
  - EAR INFECTION [None]
  - NASOPHARYNGITIS [None]
  - INTERVERTEBRAL DISC PROTRUSION [None]
  - SCOLIOSIS [None]
  - LIPOMA [None]
